FAERS Safety Report 6967521-9 (Version None)
Quarter: 2010Q3

REPORT INFORMATION
  Report Type: 
  Country: None (occurrence: None)
  Receive Date: 20100907
  Receipt Date: 20100827
  Transmission Date: 20110219
  Serious: Yes (Other)
  Sender: FDA-Public Use
  Company Number: FR-ASTRAZENECA-2010SE40853

PATIENT
  Age: 18 Month

DRUGS (2)
  1. MOPRAL [Suspect]
     Indication: DYSPEPSIA
     Route: 048
  2. POLYSILANE UPSA [Interacting]
     Indication: DYSPEPSIA
     Route: 048

REACTIONS (3)
  - DRUG INEFFECTIVE [None]
  - DYSPEPSIA [None]
  - INHIBITORY DRUG INTERACTION [None]
